FAERS Safety Report 17425498 (Version 1)
Quarter: 2020Q1

REPORT INFORMATION
  Report Type: Spontaneous
  Country: DE (occurrence: DE)
  Receive Date: 20200218
  Receipt Date: 20200218
  Transmission Date: 20200409
  Serious: Yes (Hospitalization, Other)
  Sender: FDA-Public Use
  Company Number: DE-AUROBINDO-AUR-APL-2020-007675

PATIENT
  Age: 59 Year
  Sex: Male
  Weight: 83 kg

DRUGS (10)
  1. IBRUTINIB [Suspect]
     Active Substance: IBRUTINIB
     Indication: CHRONIC LYMPHOCYTIC LEUKAEMIA
     Dosage: 420 MILLIGRAM, CYCLES 1-12: 420 MG, D1-28, Q28D LAST DOSE: 22/FEB/2019
     Route: 048
     Dates: start: 20181210, end: 20190315
  2. CANDESARTAN. [Concomitant]
     Active Substance: CANDESARTAN
     Indication: PRODUCT USED FOR UNKNOWN INDICATION
     Dosage: 4 MILLIGRAM
     Route: 048
     Dates: start: 201508, end: 20190123
  3. OBINUTUZUMAB. [Suspect]
     Active Substance: OBINUTUZUMAB
     Indication: CHRONIC LYMPHOCYTIC LEUKAEMIA
     Dosage: 1000 MILLIGRAM, CYCLES 2-6: 1000 MG, D1, Q28D MOST RECENT DOSE 04/FEB/2019
     Route: 042
     Dates: start: 20181210, end: 20190204
  4. VENETOCLAX. [Suspect]
     Active Substance: VENETOCLAX
     Indication: CHRONIC LYMPHOCYTIC LEUKAEMIA
     Dosage: 400 MILLIGRAM, CYCLES 3-12: 400 MG (4 TABL. AT 100 MG), D1-28, Q28D MOST RECENT DOSE 22/FEB/2019
     Route: 048
     Dates: start: 20190103, end: 20190222
  5. ALLOPURINOL. [Concomitant]
     Active Substance: ALLOPURINOL
     Dosage: 300 MILLIGRAM
     Route: 048
     Dates: start: 20190308
  6. RIBAVIRIN FILM COATED TABLETS [Suspect]
     Active Substance: RIBAVIRIN
     Indication: HEPATITIS E
     Dosage: 1000 MG IN MORNING AND 600 MG
     Route: 048
     Dates: start: 20190911
  7. PANTOZOL [Concomitant]
     Active Substance: PANTOPRAZOLE SODIUM
     Indication: PRODUCT USED FOR UNKNOWN INDICATION
     Dosage: 80 MILLIGRAM
     Route: 048
     Dates: start: 20190117
  8. CANDESARTAN. [Concomitant]
     Active Substance: CANDESARTAN
     Dosage: 8 MILLIGRAM
     Route: 048
     Dates: start: 20190124
  9. ALLOPURINOL. [Concomitant]
     Active Substance: ALLOPURINOL
     Indication: PRODUCT USED FOR UNKNOWN INDICATION
     Dosage: 300 MILLIGRAM
     Route: 048
     Dates: start: 20190107, end: 20190307
  10. COTRIM FORTE [Concomitant]
     Active Substance: SULFAMETHOXAZOLE\TRIMETHOPRIM
     Indication: PRODUCT USED FOR UNKNOWN INDICATION
     Dosage: 480 MILLIGRAM
     Route: 048
     Dates: start: 20190117

REACTIONS (2)
  - Dermatitis allergic [Recovered/Resolved]
  - Hepatitis E [Recovered/Resolved]

NARRATIVE: CASE EVENT DATE: 20190222
